FAERS Safety Report 6898743-3 (Version None)
Quarter: 2010Q3

REPORT INFORMATION
  Report Type: 
  Country: None (occurrence: None)
  Receive Date: 20100802
  Receipt Date: 20071128
  Transmission Date: 20110219
  Serious: Yes (Other)
  Sender: FDA-Public Use
  Company Number: US-PFIZER INC-2007100595

PATIENT
  Sex: Female
  Weight: 61.4 kg

DRUGS (4)
  1. LYRICA [Suspect]
     Indication: PAIN IN EXTREMITY
     Dates: start: 20071126
  2. AMIODARONE HYDROCHLORIDE [Concomitant]
  3. LEXAPRO [Concomitant]
  4. WARFARIN SODIUM [Concomitant]

REACTIONS (2)
  - DYSKINESIA [None]
  - TREMOR [None]
